FAERS Safety Report 5325921-7 (Version None)
Quarter: 2007Q2

REPORT INFORMATION
  Report Type: 
  Country: None (occurrence: None)
  Receive Date: 20070516
  Receipt Date: 20070510
  Transmission Date: 20071010
  Serious: Yes (Other)
  Sender: FDA-Public Use
  Company Number: PHEH2007US04086

PATIENT
  Age: 49 Year
  Sex: Female
  Weight: 63.945 kg

DRUGS (5)
  1. ZELNORM [Suspect]
     Indication: IRRITABLE BOWEL SYNDROME
     Dosage: 12 MG/DAY
     Route: 048
     Dates: start: 20041202, end: 20070320
  2. ZELNORM [Suspect]
     Dosage: 6 MG, BID
     Route: 048
     Dates: start: 20070301, end: 20070404
  3. LORAZEPAM [Concomitant]
     Dosage: 0.5 MG, QHS
     Route: 048
     Dates: start: 20041202, end: 20070320
  4. CELEXA [Concomitant]
  5. HYOSCYAMINE [Concomitant]
     Dosage: 0.375 MG, BID
     Route: 048
     Dates: start: 20041202, end: 20070320

REACTIONS (3)
  - CARDIAC FLUTTER [None]
  - CHEST PAIN [None]
  - PALPITATIONS [None]
